FAERS Safety Report 6635895-4 (Version None)
Quarter: 2010Q1

REPORT INFORMATION
  Report Type: 
  Country: None (occurrence: None)
  Receive Date: 20100316
  Receipt Date: 20100304
  Transmission Date: 20100710
  Serious: Yes (Hospitalization)
  Sender: FDA-Public Use
  Company Number: PHHO2010US03724

PATIENT
  Sex: Male
  Weight: 70.5 kg

DRUGS (4)
  1. AFINITOR [Suspect]
     Indication: HEAD AND NECK CANCER
     Dosage: 2.5 MG, QD
     Route: 048
     Dates: start: 20100201
  2. CISPLATIN COMP-CIS+ [Suspect]
     Indication: HEAD AND NECK CANCER
     Dosage: 100MG/M2
     Route: 042
     Dates: start: 20100201
  3. CISPLATIN COMP-CIS+ [Suspect]
     Dosage: 100MG/M2
     Route: 042
     Dates: start: 20100222
  4. RADIATION [Concomitant]
     Indication: HEAD AND NECK CANCER

REACTIONS (5)
  - COLITIS [None]
  - FOOD INTOLERANCE [None]
  - NAUSEA [None]
  - STAPHYLOCOCCAL BACTERAEMIA [None]
  - VOMITING [None]
